FAERS Safety Report 6142766-9 (Version None)
Quarter: 2009Q2

REPORT INFORMATION
  Report Type: 
  Country: None (occurrence: None)
  Receive Date: 20090403
  Receipt Date: 20090324
  Transmission Date: 20091009
  Serious: Yes (Other)
  Sender: FDA-Public Use
  Company Number: US-AVENTIS-200912377US

PATIENT
  Sex: Female

DRUGS (6)
  1. ARAVA [Suspect]
     Dosage: DOSE: UNK
     Dates: start: 20080101
  2. PREDNISONE [Concomitant]
     Dosage: DOSE: UNK
  3. SIMVASTATIN [Concomitant]
     Dosage: DOSE: UNK
  4. MULITVITAMIN [Concomitant]
     Dosage: DOSE: UNK
  5. ASPIRIN [Concomitant]
     Dosage: DOSE: UNK
  6. RADIATION THERAPY [Concomitant]
     Dosage: DOSE: UNK
     Dates: start: 20090210, end: 20090317

REACTIONS (3)
  - DRUG ERUPTION [None]
  - ERYTHEMA [None]
  - SKIN EXFOLIATION [None]
